FAERS Safety Report 11127122 (Version 2)
Quarter: 2015Q2

REPORT INFORMATION
  Report Type: Report from Study
  Country: CA (occurrence: CA)
  Receive Date: 20150521
  Receipt Date: 20150522
  Transmission Date: 20150821
  Serious: Yes (Life-Threatening, Hospitalization, Other)
  Sender: FDA-Public Use
  Company Number: CA-ROCHE-1562885

PATIENT
  Age: 68 Year
  Sex: Female

DRUGS (5)
  1. ACTEMRA [Suspect]
     Active Substance: TOCILIZUMAB
     Dosage: RECENT INFUSION PRIOR TO ADVERSE EVENTS ON 18/JUN/2014, 04/SEP/2014.
     Route: 042
     Dates: start: 20110412, end: 20141014
  2. ACTEMRA [Suspect]
     Active Substance: TOCILIZUMAB
     Indication: RHEUMATOID ARTHRITIS
     Dosage: RESEARCH CLINIC DOSE
     Route: 042
     Dates: start: 20081108, end: 201003
  3. CELEBREX [Concomitant]
     Active Substance: CELECOXIB
  4. ACTEMRA [Suspect]
     Active Substance: TOCILIZUMAB
     Route: 042
     Dates: start: 201003, end: 201104
  5. TYLENOL [Concomitant]
     Active Substance: ACETAMINOPHEN

REACTIONS (8)
  - Hepatitis A virus test positive [Recovered/Resolved]
  - Headache [Unknown]
  - Constipation [Recovered/Resolved]
  - Memory impairment [Unknown]
  - Gingivitis [Unknown]
  - Nausea [Recovered/Resolved]
  - Vomiting [Unknown]
  - Glioblastoma [Recovering/Resolving]

NARRATIVE: CASE EVENT DATE: 201407
